FAERS Safety Report 7025179-7 (Version None)
Quarter: 2010Q4

REPORT INFORMATION
  Report Type: 
  Country: None (occurrence: None)
  Receive Date: 20101001
  Receipt Date: 20100920
  Transmission Date: 20110411
  Serious: Yes (Other)
  Sender: FDA-Public Use
  Company Number: US-ROCHE-728743

PATIENT
  Age: 29 Year
  Sex: Female

DRUGS (5)
  1. MYCOPHENOLATE MOFETIL [Suspect]
     Indication: GLOMERULONEPHRITIS PROLIFERATIVE
     Route: 065
     Dates: start: 20070401
  2. MYCOPHENOLATE MOFETIL [Suspect]
     Dosage: DOSE INCREASED.
     Route: 065
  3. PREDNISONE [Concomitant]
     Dosage: THE PATIENT PERIODICALLY RECEIVED PREDNISONE
  4. PREDNISONE [Concomitant]
     Dosage: DOSE REDUCED.
     Dates: start: 20070401
  5. PREDNISONE [Concomitant]
     Dosage: DOSE INCREASED.

REACTIONS (1)
  - LUPUS NEPHRITIS [None]
